FAERS Safety Report 17533754 (Version 1)
Quarter: 2020Q1

REPORT INFORMATION
  Report Type: Other
  Country: US (occurrence: TR)
  Receive Date: 20200312
  Receipt Date: 20200312
  Transmission Date: 20200409
  Serious: Yes (Hospitalization, Other)
  Sender: FDA-Public Use
  Company Number: TR-BRECKENRIDGE PHARMACEUTICAL, INC.-2081551

PATIENT
  Age: 28 Month
  Sex: Female

DRUGS (3)
  1. LEVETIRACETAM. [Concomitant]
     Active Substance: LEVETIRACETAM
  2. VALPROIC ACID. [Concomitant]
     Active Substance: VALPROIC ACID
  3. CLOBAZAM. [Suspect]
     Active Substance: CLOBAZAM
     Indication: SEIZURE

REACTIONS (1)
  - Drug reaction with eosinophilia and systemic symptoms [None]
